FAERS Safety Report 4659400-7 (Version None)
Quarter: 2005Q2

REPORT INFORMATION
  Report Type: 
  Country: None (occurrence: None)
  Receive Date: 20050510
  Receipt Date: 20050504
  Transmission Date: 20051028
  Serious: Yes (Death)
  Sender: FDA-Public Use
  Company Number: GBWYE641304MAY05

PATIENT
  Age: 51 Year
  Sex: Female

DRUGS (5)
  1. EFFEXOR XR [Suspect]
     Dosage: 75 MG 2X PER 1 DAY
     Dates: start: 20041106
  2. NSAID'S (NSAID'S) [Concomitant]
  3. ANTIHYPERTENSIVES (ANTIHYPERTENSIVES) [Concomitant]
  4. ZANTAC [Concomitant]
  5. ZOPICLONE (ZOPICLONE) [Concomitant]

REACTIONS (1)
  - CARDIAC FAILURE [None]
